FAERS Safety Report 6934515-9 (Version None)
Quarter: 2010Q3

REPORT INFORMATION
  Report Type: 
  Country: None (occurrence: None)
  Receive Date: 20100820
  Receipt Date: 20100809
  Transmission Date: 20110219
  Serious: Yes (Other)
  Sender: FDA-Public Use
  Company Number: IT-WATSON-2010-11183

PATIENT
  Age: 31 Year
  Sex: Male

DRUGS (2)
  1. BETAMETHASONE SODIUM PHOSPHATE [Suspect]
     Indication: MULTIPLE SCLEROSIS
     Dosage: 4 MG, DAILY
     Dates: start: 20050901
  2. METHYLPREDNISOLONE ACETATE [Suspect]
     Indication: MULTIPLE SCLEROSIS
     Dosage: 1 G, DAILY
     Dates: start: 20030301

REACTIONS (1)
  - OSTEONECROSIS [None]
